FAERS Safety Report 8095914-8 (Version None)
Quarter: 2012Q1

REPORT INFORMATION
  Report Type: 
  Country: None (occurrence: None)
  Receive Date: 20120129
  Receipt Date: 20111223
  Transmission Date: 20120608
  Serious: No
  Sender: FDA-Public Use
  Company Number: US-ABBOTT-11P-163-0886630-00

PATIENT
  Age: 74 Year
  Sex: Female

DRUGS (5)
  1. METOPROLOL TARTRATE [Concomitant]
     Indication: HYPERTENSION
     Route: 048
  2. HUMIRA [Suspect]
     Indication: PSORIASIS
     Dates: start: 20111118
  3. LEXAPRO [Concomitant]
     Indication: ANXIETY
  4. SYNTHROID [Concomitant]
     Indication: HYPOTHYROIDISM
     Route: 048
     Dates: start: 19920101
  5. LEXAPRO [Concomitant]
     Indication: DEPRESSION
     Route: 048

REACTIONS (4)
  - INJECTION SITE SWELLING [None]
  - INCORRECT ROUTE OF DRUG ADMINISTRATION [None]
  - WRONG TECHNIQUE IN DRUG USAGE PROCESS [None]
  - INJECTION SITE DISCOLOURATION [None]
